FAERS Safety Report 4659661-4 (Version None)
Quarter: 2005Q2

REPORT INFORMATION
  Report Type: 
  Country: None (occurrence: None)
  Receive Date: 20050502
  Receipt Date: 20050120
  Transmission Date: 20051028
  Serious: No
  Sender: FDA-Public Use
  Company Number: 200417467US

PATIENT
  Age: 48 Year
  Sex: Female
  Weight: 86.3 kg

DRUGS (6)
  1. KETEK [Suspect]
     Indication: LOWER RESPIRATORY TRACT INFECTION
     Dosage: 400 MG QD PO
     Route: 048
     Dates: start: 20040916, end: 20040917
  2. KETEK [Suspect]
     Indication: PYREXIA
     Dosage: 400 MG QD PO
     Route: 048
     Dates: start: 20040916, end: 20040917
  3. KETEK [Suspect]
     Indication: SINUSITIS
     Dosage: 400 MG QD PO
     Route: 048
     Dates: start: 20040916, end: 20040917
  4. METFORMIN HCL [Concomitant]
  5. GLYBURIDE [Concomitant]
  6. TRICOR [Concomitant]

REACTIONS (9)
  - ABDOMINAL DISTENSION [None]
  - CHEST PAIN [None]
  - DIZZINESS [None]
  - FATIGUE [None]
  - HEART RATE DECREASED [None]
  - HYPERHIDROSIS [None]
  - HYPOTENSION [None]
  - NAUSEA [None]
  - PALPITATIONS [None]
